FAERS Safety Report 6072998-X (Version None)
Quarter: 2009Q1

REPORT INFORMATION
  Report Type: 
  Country: None (occurrence: None)
  Receive Date: 20090211
  Receipt Date: 20090203
  Transmission Date: 20090719
  Serious: Yes (Other)
  Sender: FDA-Public Use
  Company Number: JP-RANBAXY-2008RR-19403

PATIENT
  Age: 26 Year
  Sex: Male
  Weight: 70 kg

DRUGS (6)
  1. PENTAZOCINE LACTATE [Suspect]
     Indication: THYROID CANCER
     Dosage: 60 MG, UNK
  2. DROPERIDOL [Concomitant]
     Indication: THYROID CANCER
     Dosage: 15 MG, UNK
  3. LIDOCAINE [Concomitant]
     Indication: LOCAL ANAESTHESIA
     Dosage: 7 ML, UNK
  4. LIDOCAINE [Concomitant]
     Dosage: 6.5 ML, UNK
  5. EPINEPHRINE [Concomitant]
     Indication: LOCAL ANAESTHESIA
     Dosage: 10000 IU, UNK
  6. PHENOBARBITAL [Concomitant]
     Dosage: 100 MG, UNK
     Route: 030

REACTIONS (1)
  - GRAND MAL CONVULSION [None]
